FAERS Safety Report 21864602 (Version 1)
Quarter: 2023Q1

REPORT INFORMATION
  Report Type: Report from Study
  Country: PR (occurrence: PR)
  Receive Date: 20230116
  Receipt Date: 20230116
  Transmission Date: 20230417
  Serious: No
  Sender: FDA-Public Use
  Company Number: PR-ABBVIE-4270614

PATIENT
  Sex: Female
  Weight: 81.646 kg

DRUGS (1)
  1. VENCLEXTA [Suspect]
     Active Substance: VENETOCLAX
     Indication: Chronic lymphocytic leukaemia
     Route: 048
     Dates: start: 20221125

REACTIONS (4)
  - Tremor [Unknown]
  - White blood cell count decreased [Unknown]
  - Muscular weakness [Unknown]
  - Headache [Unknown]
